FAERS Safety Report 5530958-9 (Version None)
Quarter: 2007Q4

REPORT INFORMATION
  Report Type: 
  Country: None (occurrence: None)
  Receive Date: 20071130
  Receipt Date: 20071120
  Transmission Date: 20080405
  Serious: Yes (Other)
  Sender: FDA-Public Use
  Company Number: JP-PFIZER INC-2007077644

PATIENT
  Sex: Male
  Weight: 59 kg

DRUGS (10)
  1. DOXAZOSIN MESYLATE [Suspect]
     Indication: HYPERTENSION
     Route: 048
  2. OLMETEC [Suspect]
     Indication: HYPERTENSION
     Route: 048
  3. SEVOFLURANE [Concomitant]
  4. PROPOFOL [Concomitant]
  5. VECURONIUM BROMIDE [Concomitant]
  6. NITROUS OXIDE [Concomitant]
  7. OXYGEN [Concomitant]
  8. BREDININ [Concomitant]
     Route: 048
  9. PREDNISOLONE [Concomitant]
     Route: 048
  10. TAKEPRON [Concomitant]
     Route: 048

REACTIONS (3)
  - BLOOD PRESSURE SYSTOLIC INCREASED [None]
  - HYPOTENSION [None]
  - IGA NEPHROPATHY [None]
